FAERS Safety Report 11688298 (Version 1)
Quarter: 2015Q4

REPORT INFORMATION
  Report Type: Spontaneous
  Country: RU (occurrence: RU)
  Receive Date: 20151030
  Receipt Date: 20151030
  Transmission Date: 20160304
  Serious: Yes (Hospitalization, Other)
  Sender: FDA-Public Use
  Company Number: RU-ROXANE LABORATORIES, INC.-2015-RO-01775RO

PATIENT
  Sex: Female

DRUGS (2)
  1. 5-NOK [Concomitant]
     Route: 065
  2. FUROSEMIDE. [Suspect]
     Active Substance: FUROSEMIDE
     Indication: FLUID RETENTION
     Route: 065

REACTIONS (8)
  - Gastroduodenitis [Unknown]
  - Gastroenteritis [Recovered/Resolved]
  - Hypothyroidism [Unknown]
  - Iron deficiency anaemia [Unknown]
  - Tubulointerstitial nephritis [Unknown]
  - Acute kidney injury [Recovered/Resolved]
  - Drug abuse [Unknown]
  - Autoimmune thyroiditis [Unknown]

NARRATIVE: CASE EVENT DATE: 201311
